FAERS Safety Report 14237118 (Version 1)
Quarter: 2017Q4

REPORT INFORMATION
  Report Type: Spontaneous
  Country: US (occurrence: US)
  Receive Date: 20171129
  Receipt Date: 20171129
  Transmission Date: 20180321
  Serious: Yes (Other)
  Sender: FDA-Public Use
  Company Number: US-INCYTE CORPORATION-2017IN010214

PATIENT

DRUGS (1)
  1. JAKAFI [Suspect]
     Active Substance: RUXOLITINIB
     Indication: GERM CELL CANCER
     Dosage: UNK
     Route: 065

REACTIONS (2)
  - Product use in unapproved indication [Unknown]
  - Hepatitis C [Unknown]
